FAERS Safety Report 9778415 (Version 2)
Quarter: 2015Q2

REPORT INFORMATION
  Report Type: Spontaneous
  Country: US (occurrence: US)
  Receive Date: 20131223
  Receipt Date: 20150508
  Transmission Date: 20150821
  Serious: Yes (Other)
  Sender: FDA-Public Use
  Company Number: US-BAYER-2013-155570

PATIENT
  Age: 31 Year
  Sex: Female

DRUGS (1)
  1. MIRENA [Suspect]
     Active Substance: LEVONORGESTREL
     Indication: CONTRACEPTION
     Dosage: 20 MCG/24HR, CONT
     Route: 015
     Dates: start: 201102

REACTIONS (6)
  - Urinary tract infection [None]
  - Genital haemorrhage [Recovered/Resolved]
  - Vaginal haemorrhage [None]
  - Amenorrhoea [None]
  - Abdominal pain lower [None]
  - Vaginal discharge [None]

NARRATIVE: CASE EVENT DATE: 2011
